FAERS Safety Report 7992684-6 (Version None)
Quarter: 2011Q4

REPORT INFORMATION
  Report Type: 
  Country: None (occurrence: None)
  Receive Date: 20111219
  Receipt Date: 20110221
  Transmission Date: 20120403
  Serious: No
  Sender: FDA-Public Use
  Company Number: US-ASTRAZENECA-2011SE09810

PATIENT
  Age: 78 Year
  Sex: Male

DRUGS (6)
  1. ALLOPURINOL [Concomitant]
  2. BLOOD PRESSURE MEDICINE [Concomitant]
  3. VIAGRA [Concomitant]
  4. CRESTOR [Suspect]
     Route: 048
     Dates: start: 20110219
  5. CRESTOR [Suspect]
     Route: 048
     Dates: start: 20070101
  6. LEVITRA [Concomitant]

REACTIONS (2)
  - SEXUAL DYSFUNCTION [None]
  - JOINT STIFFNESS [None]
